FAERS Safety Report 7392309-7 (Version None)
Quarter: 2011Q2

REPORT INFORMATION
  Report Type: 
  Country: None (occurrence: None)
  Receive Date: 20110404
  Receipt Date: 20110401
  Transmission Date: 20111010
  Serious: Yes (Other)
  Sender: FDA-Public Use
  Company Number: US-PFIZER INC-2011073291

PATIENT
  Sex: Female
  Weight: 117.1 kg

DRUGS (8)
  1. ARAVA [Concomitant]
     Indication: RHEUMATOID ARTHRITIS
     Dosage: UNK
  2. OMEPRAZOLE [Concomitant]
     Indication: GASTROOESOPHAGEAL REFLUX DISEASE
     Dosage: UNK
  3. TIKOSYN [Suspect]
     Indication: ATRIAL FLUTTER
  4. ALBUTEROL [Concomitant]
     Indication: ASTHMA
     Dosage: UNK
  5. PREDNISONE [Concomitant]
     Indication: RHEUMATOID ARTHRITIS
     Dosage: UNK
  6. IPRATROPIUM [Concomitant]
     Indication: ASTHMA
     Dosage: UNK
  7. TRIAMCINOLONE [Concomitant]
     Indication: ASTHMA
     Dosage: UNK
  8. TIKOSYN [Suspect]
     Indication: ATRIAL FIBRILLATION
     Dosage: 0.5 MG, 2X/DAY
     Route: 048
     Dates: start: 20060101

REACTIONS (1)
  - COLITIS [None]
